FAERS Safety Report 5852205-0 (Version None)
Quarter: 2008Q3

REPORT INFORMATION
  Report Type: 
  Country: None (occurrence: None)
  Receive Date: 20080819
  Receipt Date: 20080804
  Transmission Date: 20090109
  Serious: Yes (Death)
  Sender: FDA-Public Use
  Company Number: KADN20080317

PATIENT
  Age: 52 Year
  Sex: Female

DRUGS (3)
  1. MORPHINE [Suspect]
     Dosage: ORAL
     Route: 048
     Dates: end: 20060101
  2. COCAINE [Suspect]
     Dates: end: 20060101
  3. CODEINE SUL TAB [Concomitant]

REACTIONS (3)
  - COMPLETED SUICIDE [None]
  - DRUG ABUSER [None]
  - OVERDOSE [None]
